FAERS Safety Report 6024232-4 (Version None)
Quarter: 2008Q4

REPORT INFORMATION
  Report Type: 
  Country: None (occurrence: None)
  Receive Date: 20081229
  Receipt Date: 20081217
  Transmission Date: 20090506
  Serious: Yes (Hospitalization)
  Sender: FDA-Public Use
  Company Number: CLOF-1000179

PATIENT
  Age: 68 Year
  Sex: Female
  Weight: 55.4 kg

DRUGS (24)
  1. CLOFARABINE     (CLOFARABINE) SOLUTION FOR INFUSION [Suspect]
     Indication: ACUTE MYELOID LEUKAEMIA
     Dosage: 48.6 MG, QDX5, INTRAVENOUS
     Route: 042
     Dates: start: 20080426, end: 20080430
  2. BUSULFAN (BUSULFAN) [Suspect]
     Indication: ACUTE MYELOID LEUKAEMIA
     Dosage: 3.2 MG/KG, QD, INTRAVENOUS
     Route: 042
     Dates: start: 20080427, end: 20080430
  3. URSODIOL [Concomitant]
  4. CYCLOSPORINE [Concomitant]
  5. TACROLIMUS [Concomitant]
  6. MYCOPHENOLATE MOFETIL [Concomitant]
  7. ACYCLOVIR [Concomitant]
  8. DIPHENHYDRAMINE HCL [Concomitant]
  9. HYDROCORTISONE SODIUM SUCCINATE [Concomitant]
  10. MICAFUNGIN SODIUM    (MICAFUNGIN SODIUM) [Concomitant]
  11. PHENYTOIN SODIUM EXTENDED (PHENYTOIN SODIUM) [Concomitant]
  12. FLUCONAZOLE [Concomitant]
  13. DEXAMETHASONE SODIUM PHOSPHATE [Concomitant]
  14. CHOLESTYRAMINE (COLESTYRAMINE) [Concomitant]
  15. PANTOPRAZOLE SODIUM [Concomitant]
  16. ONDANSETRON HYDROCHLORIDE [Concomitant]
  17. CEFEPIME HYDROCHLORIDE [Concomitant]
  18. MAGNESIUM HYDROXIDE W (SIMETIICONE) [Concomitant]
  19. LORAZEPAM [Concomitant]
  20. HYDROXYZINE HCL [Concomitant]
  21. OXYCODONE HCL [Concomitant]
  22. PROCHLORPERAZINE EDISYLATE (PROCHLOROPERAZINE EDISYLATE) [Concomitant]
  23. ZOLPIDEM TARTRATE [Concomitant]
  24. ACETAMINOPHEN [Concomitant]

REACTIONS (36)
  - ALANINE AMINOTRANSFERASE INCREASED [None]
  - ASCITES [None]
  - BACTERIA STOOL IDENTIFIED [None]
  - BACTERIA URINE IDENTIFIED [None]
  - BLOOD CREATININE INCREASED [None]
  - CHOLELITHIASIS [None]
  - DIARRHOEA [None]
  - ENTEROCOCCAL INFECTION [None]
  - FLATULENCE [None]
  - GRAFT VERSUS HOST DISEASE [None]
  - HAEMOCHROMATOSIS [None]
  - HAEMOSIDEROSIS [None]
  - HEPATIC FIBROSIS [None]
  - HEPATOSPLENOMEGALY [None]
  - HYPERGLYCAEMIA [None]
  - HYPOKALAEMIA [None]
  - HYPOMAGNESAEMIA [None]
  - HYPONATRAEMIA [None]
  - IRON OVERLOAD [None]
  - LIVER DISORDER [None]
  - NAUSEA [None]
  - OEDEMA PERIPHERAL [None]
  - PAIN [None]
  - PANCYTOPENIA [None]
  - PITTING OEDEMA [None]
  - PLEURAL EFFUSION [None]
  - PORTAL HYPERTENSION [None]
  - PORTAL VEIN FLOW DECREASED [None]
  - PORTAL VEIN THROMBOSIS [None]
  - POST PROCEDURAL DISCOMFORT [None]
  - SPLEEN DISORDER [None]
  - SPLENOMEGALY [None]
  - THROMBOCYTOPENIA [None]
  - VENOOCCLUSIVE LIVER DISEASE [None]
  - VOMITING [None]
  - WEIGHT INCREASED [None]
